FAERS Safety Report 5573206-6 (Version None)
Quarter: 2007Q4

REPORT INFORMATION
  Report Type: 
  Country: None (occurrence: None)
  Receive Date: 20071220
  Receipt Date: 20071204
  Transmission Date: 20080405
  Serious: Yes (Hospitalization)
  Sender: FDA-Public Use
  Company Number: DSA_30975_2007

PATIENT
  Age: 79 Year
  Sex: Male

DRUGS (4)
  1. ENALAPRIL MALEATE [Suspect]
     Indication: HYPERTENSION
     Dosage: 20 MG QD ORAL
     Route: 048
     Dates: start: 20020101
  2. ENALAPRIL MALEATE [Suspect]
     Indication: RENOVASCULAR HYPERTENSION
     Dosage: 20 MG QD ORAL
     Route: 048
     Dates: start: 20020101
  3. CARDURA [Suspect]
     Indication: HYPERTENSION
     Dosage: 10 MG QD ORAL
     Route: 048
     Dates: start: 20020101
  4. CARDURA [Suspect]
     Indication: RENOVASCULAR HYPERTENSION
     Dosage: 10 MG QD ORAL
     Route: 048
     Dates: start: 20020101

REACTIONS (2)
  - ATRIOVENTRICULAR BLOCK SECOND DEGREE [None]
  - DRUG INTERACTION [None]
